FAERS Safety Report 10976226 (Version 1)
Quarter: 2015Q2

REPORT INFORMATION
  Report Type: Spontaneous
  Country: US (occurrence: US)
  Receive Date: 20150401
  Receipt Date: 20150401
  Transmission Date: 20150821
  Serious: Yes (Hospitalization)
  Sender: FDA-Public Use
  Company Number: US-009507513-1503USA014894

PATIENT
  Sex: Female

DRUGS (7)
  1. PREGNYL [Suspect]
     Active Substance: CHORIOGONADOTROPIN ALFA
     Indication: OOCYTE HARVEST
     Dosage: 10.000 IU
  2. GONAL-F [Suspect]
     Active Substance: FOLLITROPIN
     Indication: OVARIAN HYPERSTIMULATION SYNDROME
  3. FOLLISTIM [Suspect]
     Active Substance: FOLLITROPIN
     Indication: OVARIAN HYPERSTIMULATION SYNDROME
  4. PREGNYL [Suspect]
     Active Substance: CHORIOGONADOTROPIN ALFA
     Indication: INFERTILITY
  5. GANIRELIX ACETATE INJECTION [Suspect]
     Active Substance: GANIRELIX ACETATE
     Indication: OVARIAN HYPERSTIMULATION SYNDROME
  6. MENOPUR [Suspect]
     Active Substance: FOLLICLE STIMULATING HORMONE BETA POLYPEPTIDE\LUTROPIN ALFA
  7. CETROTIDE [Suspect]
     Active Substance: CETRORELIX ACETATE
     Indication: OVARIAN HYPERSTIMULATION SYNDROME

REACTIONS (1)
  - Ovarian hyperstimulation syndrome [Unknown]
